FAERS Safety Report 10191978 (Version 8)
Quarter: 2014Q2

REPORT INFORMATION
  Report Type: Spontaneous
  Country: US (occurrence: US)
  Receive Date: 20140523
  Receipt Date: 20140620
  Transmission Date: 20141212
  Serious: Yes (Death, Hospitalization)
  Sender: FDA-Public Use
  Company Number: US-JNJFOC-20140514124

PATIENT
  Age: 82 Year
  Sex: Female

DRUGS (17)
  1. XARELTO [Suspect]
     Indication: ANTICOAGULANT THERAPY
     Route: 048
     Dates: start: 20140324, end: 20140516
  2. XARELTO [Suspect]
     Indication: TRANSIENT ISCHAEMIC ATTACK
     Route: 048
     Dates: start: 20140324, end: 20140516
  3. XARELTO [Suspect]
     Indication: ATRIAL FIBRILLATION
     Route: 048
     Dates: start: 20140324, end: 20140516
  4. XARELTO [Suspect]
     Indication: CEREBROVASCULAR ACCIDENT PROPHYLAXIS
     Route: 048
     Dates: start: 20140324, end: 20140516
  5. ASPIRIN [Suspect]
     Indication: PRODUCT USED FOR UNKNOWN INDICATION
     Route: 048
  6. LOSARTAN [Concomitant]
     Indication: HYPERTENSION
     Route: 048
     Dates: start: 20140415, end: 20140514
  7. LYRICA [Concomitant]
     Indication: NEUROPATHY PERIPHERAL
     Route: 048
  8. LYRICA [Concomitant]
     Indication: NEUROPATHY PERIPHERAL
     Dosage: AT BEDTIME.
     Route: 048
  9. PREMARIN [Concomitant]
     Indication: HORMONE REPLACEMENT THERAPY
     Route: 065
  10. VESICARE [Concomitant]
     Indication: URINARY INCONTINENCE
     Route: 065
  11. KCL [Concomitant]
     Indication: MINERAL SUPPLEMENTATION
     Route: 065
     Dates: start: 20130507, end: 20140514
  12. THERAGRAN-M [Concomitant]
     Dosage: 27-0.4 MG
     Route: 048
  13. CRESTOR [Concomitant]
     Route: 048
  14. MYRBETRIQ [Concomitant]
     Route: 048
  15. CYMBALTA [Concomitant]
     Route: 048
  16. CALTRATE [Concomitant]
     Route: 048
  17. TENORMIN [Concomitant]
     Route: 048
     Dates: start: 20140324

REACTIONS (1)
  - Haemorrhagic stroke [Fatal]
